FAERS Safety Report 16661666 (Version 3)
Quarter: 2020Q1

REPORT INFORMATION
  Report Type: Spontaneous
  Country: IN (occurrence: IN)
  Receive Date: 20190802
  Receipt Date: 20200109
  Transmission Date: 20200409
  Serious: Yes (Other)
  Sender: FDA-Public Use
  Company Number: IN-PFIZER INC-2019327134

PATIENT
  Age: 67 Year
  Sex: Female

DRUGS (1)
  1. PALBACE [Suspect]
     Active Substance: PALBOCICLIB
     Indication: BREAST CANCER METASTATIC
     Dosage: 100 MG, 1X/DAY FOR 3 WEEKS
     Route: 048
     Dates: start: 20180503

REACTIONS (6)
  - Hepatic steatosis [Unknown]
  - Wound [Unknown]
  - Haemoglobin decreased [Recovering/Resolving]
  - Neoplasm progression [Unknown]
  - Dermoid cyst [Unknown]
  - Ultrasound scan abnormal [Unknown]
